FAERS Safety Report 8604749-6 (Version None)
Quarter: 2012Q3

REPORT INFORMATION
  Report Type: 
  Country: None (occurrence: None)
  Receive Date: 20120820
  Receipt Date: 20120810
  Transmission Date: 20120928
  Serious: Yes (Hospitalization)
  Sender: FDA-Public Use
  Company Number: FR-JNJFOC-20120806082

PATIENT
  Age: 37 Year
  Sex: Female

DRUGS (3)
  1. MICONAZOLE [Suspect]
     Route: 002
  2. SINTROM [Suspect]
     Indication: PULMONARY EMBOLISM
     Route: 048
     Dates: start: 19940101
  3. MICONAZOLE [Suspect]
     Indication: ORAL CANDIDIASIS
     Route: 002
     Dates: start: 20100301

REACTIONS (4)
  - CEREBRAL HAEMORRHAGE [None]
  - HAEMORRHAGE INTRACRANIAL [None]
  - HAEMATURIA [None]
  - INTERNATIONAL NORMALISED RATIO INCREASED [None]
